FAERS Safety Report 11208288 (Version 2)
Quarter: 2015Q2

REPORT INFORMATION
  Report Type: Report from Study
  Country: KR (occurrence: KR)
  Receive Date: 20150622
  Receipt Date: 20150624
  Transmission Date: 20150821
  Serious: Yes (Hospitalization)
  Sender: FDA-Public Use
  Company Number: KR-OTSUKA-2015_003569

PATIENT
  Age: 58 Year
  Sex: Male

DRUGS (7)
  1. NIFEDIPINE. [Concomitant]
     Active Substance: NIFEDIPINE
     Indication: HYPERTENSION
     Dosage: 30 MG, QD
     Route: 048
     Dates: start: 20150423
  2. ACARBOSE. [Concomitant]
     Active Substance: ACARBOSE
     Indication: TYPE 2 DIABETES MELLITUS
     Dosage: 150 MG, QD
     Route: 048
     Dates: start: 20150423
  3. PROBUCOL [Suspect]
     Active Substance: PROBUCOL
     Indication: CORONARY ARTERY DISEASE
     Dosage: 500 MG, QD
     Route: 048
     Dates: start: 20120806
  4. LOSARTAN [Concomitant]
     Active Substance: LOSARTAN
     Indication: HYPERTENSION
     Dosage: 100 MG, QD
     Route: 048
     Dates: start: 201002
  5. HUMALOG [Concomitant]
     Active Substance: INSULIN LISPRO
     Indication: TYPE 2 DIABETES MELLITUS
     Dosage: 22 U
     Route: 065
     Dates: start: 2013
  6. CILOSTAZOL. [Suspect]
     Active Substance: CILOSTAZOL
     Indication: CORONARY ARTERY DISEASE
     Dosage: 200 MG, QD
     Route: 048
     Dates: start: 20120806
  7. NORVASC [Concomitant]
     Active Substance: AMLODIPINE BESYLATE
     Indication: HYPERTENSION
     Dosage: 2.5 MG, QD
     Route: 048
     Dates: start: 20150615

REACTIONS (1)
  - Coronary artery disease [Recovering/Resolving]

NARRATIVE: CASE EVENT DATE: 20150609
